FAERS Safety Report 24426593 (Version 2)
Quarter: 2024Q4

REPORT INFORMATION
  Report Type: Spontaneous
  Country: CN (occurrence: CN)
  Receive Date: 20241011
  Receipt Date: 20241023
  Transmission Date: 20250114
  Serious: Yes (Hospitalization, Other)
  Sender: SANOFI AVENTIS
  Company Number: CN-SA-2024SA289454

PATIENT
  Age: 3 Year
  Sex: Male

DRUGS (2)
  1. DUPIXENT [Suspect]
     Active Substance: DUPILUMAB
     Indication: Dermatitis atopic
     Dosage: 200 MG
     Dates: start: 202311
  2. DUPIXENT [Suspect]
     Active Substance: DUPILUMAB
     Dosage: 200 MG
     Dates: start: 20240214

REACTIONS (11)
  - Pustular psoriasis [Recovering/Resolving]
  - Pyrexia [Recovering/Resolving]
  - Conjunctival hyperaemia [Recovering/Resolving]
  - Skin plaque [Recovering/Resolving]
  - Ichthyosis [Recovering/Resolving]
  - Parakeratosis [Recovering/Resolving]
  - Eye abscess [Recovering/Resolving]
  - Scab [Recovering/Resolving]
  - Acanthosis [Recovering/Resolving]
  - Oedema [Recovering/Resolving]
  - Rash [Recovering/Resolving]

NARRATIVE: CASE EVENT DATE: 20231101
